FAERS Safety Report 7690296-5 (Version None)
Quarter: 2011Q3

REPORT INFORMATION
  Report Type: 
  Country: None (occurrence: None)
  Receive Date: 20110818
  Receipt Date: 20110810
  Transmission Date: 20111222
  Serious: Yes (Hospitalization)
  Sender: FDA-Public Use
  Company Number: US-ELI_LILLY_AND_COMPANY-US201108003208

PATIENT
  Sex: Male
  Weight: 108.84 kg

DRUGS (6)
  1. NORTRIPTYLINE HCL [Concomitant]
     Dosage: 10 MG, EACH EVENING
  2. NPH INSULIN [Concomitant]
     Dosage: 40 UNK, UNK
  3. GABAPENTIN [Concomitant]
     Dosage: 100 MG, QD
  4. BYETTA [Suspect]
     Dosage: 5 MG, BID
     Dates: start: 20080501, end: 20080801
  5. PRAVACHOL [Concomitant]
     Dosage: 80 MG, EACH EVENING
  6. LISINOPRIL [Concomitant]
     Dosage: 20 MG, QD

REACTIONS (2)
  - OFF LABEL USE [None]
  - GASTROINTESTINAL HAEMORRHAGE [None]
